FAERS Safety Report 13366645 (Version 1)
Quarter: 2017Q1

REPORT INFORMATION
  Report Type: Spontaneous
  Country: US (occurrence: US)
  Receive Date: 20170323
  Receipt Date: 20170323
  Transmission Date: 20170429
  Serious: No
  Sender: FDA-Public Use
  Company Number: US-VIFOR (INTERNATIONAL) INC.-VIT-2017-02613

PATIENT
  Sex: Female
  Weight: 55 kg

DRUGS (3)
  1. MIRCERA [Suspect]
     Active Substance: METHOXY POLYETHYLENE GLYCOL-EPOETIN BETA
     Indication: PRODUCT USED FOR UNKNOWN INDICATION
     Dosage: 100 MCG/0.3 ML
  2. LIQUACEL [Concomitant]
  3. CALCITRIOL. [Concomitant]
     Active Substance: CALCITRIOL

REACTIONS (4)
  - Face oedema [Unknown]
  - Dyspnoea [Unknown]
  - Lip swelling [Unknown]
  - Flushing [Unknown]
